FAERS Safety Report 17202249 (Version 1)
Quarter: 2019Q4

REPORT INFORMATION
  Report Type: Spontaneous
  Country: US (occurrence: US)
  Receive Date: 20191226
  Receipt Date: 20191226
  Transmission Date: 20200122
  Serious: Yes (Death)
  Sender: FDA-Public Use
  Company Number: US-NOVOPROD-703380

PATIENT
  Sex: Male

DRUGS (1)
  1. VICTOZA [Suspect]
     Active Substance: LIRAGLUTIDE
     Indication: PRODUCT USED FOR UNKNOWN INDICATION
     Dosage: UNK
     Route: 058
     Dates: start: 2013, end: 201712

REACTIONS (3)
  - Jaundice [Unknown]
  - Pancreatic carcinoma [Fatal]
  - Fatigue [Unknown]

NARRATIVE: CASE EVENT DATE: 20171217
